FAERS Safety Report 21842237 (Version 2)
Quarter: 2023Q1

REPORT INFORMATION
  Report Type: Report from Study
  Country: US (occurrence: US)
  Receive Date: 20230110
  Receipt Date: 20230117
  Transmission Date: 20230418
  Serious: Yes (Life-Threatening, Hospitalization)
  Sender: FDA-Public Use
  Company Number: US-JNJFOC-20230108935

PATIENT
  Age: 66 Year
  Sex: Female
  Weight: 70.6 kg

DRUGS (4)
  1. DARATUMUMAB [Suspect]
     Active Substance: DARATUMUMAB
     Indication: Plasma cell myeloma
     Dosage: MOST RECENT DOSE WAS ON 29-DEC-2022
     Route: 058
     Dates: start: 20210902
  2. LENALIDOMIDE [Suspect]
     Active Substance: LENALIDOMIDE
     Indication: Plasma cell myeloma
     Dosage: MOST RECENT DOSE WAS ON 02-JAN-2023?TOTAL DOSE FROM 29-DEC-2022 TO 02-JAN-2023 WAS 50 MG
     Route: 048
     Dates: start: 20210902
  3. DEXAMETHASONE [Suspect]
     Active Substance: DEXAMETHASONE
     Indication: Plasma cell myeloma
     Dosage: LAST DOSE WAS ON 29-DEC-2022
     Route: 048
     Dates: start: 20210902
  4. BORTEZOMIB [Suspect]
     Active Substance: BORTEZOMIB
     Indication: Plasma cell myeloma
     Dosage: MOST RECENT DOSE WAS ON 29-DEC-2022
     Route: 065
     Dates: start: 20210902

REACTIONS (1)
  - Meningitis [Recovering/Resolving]

NARRATIVE: CASE EVENT DATE: 20230102
